FAERS Safety Report 7051528-X (Version None)
Quarter: 2010Q4

REPORT INFORMATION
  Report Type: 
  Country: None (occurrence: None)
  Receive Date: 20101019
  Receipt Date: 20101008
  Transmission Date: 20110411
  Serious: Yes (Other)
  Sender: FDA-Public Use
  Company Number: DE-SANOFI-AVENTIS-2010SA051642

PATIENT
  Age: 61 Year
  Sex: Male

DRUGS (3)
  1. RILUTEK [Suspect]
     Indication: AMYOTROPHIC LATERAL SCLEROSIS
     Route: 048
     Dates: start: 20100401
  2. AMLODIPINE [Concomitant]
     Indication: PRODUCT USED FOR UNKNOWN INDICATION
     Route: 048
  3. REQUIP [Concomitant]
     Indication: TREMOR
     Dates: start: 20090901

REACTIONS (3)
  - CONDITION AGGRAVATED [None]
  - RESPIRATORY DISORDER [None]
  - WEIGHT DECREASED [None]
